FAERS Safety Report 6541361-7 (Version None)
Quarter: 2010Q1

REPORT INFORMATION
  Report Type: 
  Country: None (occurrence: None)
  Receive Date: 20100118
  Receipt Date: 20100107
  Transmission Date: 20100710
  Serious: Yes (Other)
  Sender: FDA-Public Use
  Company Number: PHEH2009US18189

PATIENT
  Age: 82 Year
  Sex: Male

DRUGS (5)
  1. ZOMETA [Suspect]
  2. REVLIMID [Concomitant]
     Indication: MULTIPLE MYELOMA
     Dosage: 10 MG, QOD
  3. DEXAMETHASONE [Concomitant]
     Dosage: 20 MG, QMO
  4. COUMADIN [Concomitant]
     Dosage: 7.5 MG, QD
  5. NORVASC [Concomitant]
     Dosage: 2.5 MG, QD

REACTIONS (2)
  - SURGERY [None]
  - TOOTH ABSCESS [None]
